FAERS Safety Report 8836685 (Version 1)
Quarter: 2012Q4

REPORT INFORMATION
  Report Type: Spontaneous
  Country: IN (occurrence: None)
  Receive Date: 20121009
  Receipt Date: 20121009
  Transmission Date: 20130627
  Serious: Yes (Hospitalization)
  Sender: FDA-Public Use
  Company Number: IMP_06011_2012

PATIENT
  Age: 26 Year
  Sex: Male

DRUGS (2)
  1. CHLOROQUINE [Suspect]
     Indication: PYREXIA
  2. CHLOROQUINE [Suspect]
     Indication: MALARIA

REACTIONS (1)
  - Mania [None]
